FAERS Safety Report 10562505 (Version 2)
Quarter: 2015Q2

REPORT INFORMATION
  Report Type: Report from Study
  Country: TR (occurrence: TR)
  Receive Date: 20141104
  Receipt Date: 20150420
  Transmission Date: 20150821
  Serious: Yes (Hospitalization)
  Sender: FDA-Public Use
  Company Number: TR-NOVOPROD-427236

PATIENT
  Sex: Male
  Weight: 3.5 kg

DRUGS (3)
  1. NOVORAPID [Suspect]
     Active Substance: INSULIN ASPART
     Indication: GESTATIONAL DIABETES
     Dosage: 54 U, QD
     Route: 064
     Dates: start: 20140418, end: 20140706
  2. INSULIN DETEMIR FLEXPEN [Suspect]
     Active Substance: INSULIN DETEMIR
     Indication: GESTATIONAL DIABETES
     Dosage: 26 U, QD
     Route: 064
     Dates: start: 20140418, end: 20140706
  3. CALCIMAX                           /00751520/ [Concomitant]
     Indication: MINERAL SUPPLEMENTATION
     Dosage: 1X1
     Route: 064
     Dates: start: 20140418, end: 20140706

REACTIONS (3)
  - Foetal exposure during pregnancy [Recovered/Resolved]
  - Immature respiratory system [Not Recovered/Not Resolved]
  - Muscular weakness [Not Recovered/Not Resolved]

NARRATIVE: CASE EVENT DATE: 20140418
